FAERS Safety Report 4786984-0 (Version None)
Quarter: 2005Q4

REPORT INFORMATION
  Report Type: 
  Country: None (occurrence: None)
  Receive Date: 20051004
  Receipt Date: 20050930
  Transmission Date: 20060501
  Serious: Yes (Other)
  Sender: FDA-Public Use
  Company Number: US-GLAXOSMITHKLINE-A0576594A

PATIENT
  Sex: Female

DRUGS (5)
  1. AVANDAMET [Suspect]
     Dosage: 1TAB TWICE PER DAY
     Route: 048
  2. ADVAIR DISKUS 100/50 [Suspect]
     Indication: ASTHMA
     Dosage: 1PUFF FOUR TIMES PER DAY
     Route: 055
  3. CELEBREX [Concomitant]
  4. GLUCOTROL [Concomitant]
  5. COREG [Concomitant]

REACTIONS (3)
  - CARDIOMEGALY [None]
  - DYSPNOEA [None]
  - PRESCRIBED OVERDOSE [None]
